FAERS Safety Report 4811132-8 (Version None)
Quarter: 2005Q4

REPORT INFORMATION
  Report Type: 
  Country: None (occurrence: None)
  Receive Date: 20051027
  Receipt Date: 20051025
  Transmission Date: 20060501
  Serious: Yes (Disabling)
  Sender: FDA-Public Use
  Company Number: US-GLAXOSMITHKLINE-A0579593A

PATIENT
  Sex: Male

DRUGS (3)
  1. COREG [Suspect]
     Indication: HYPERTENSION
     Dosage: 6.25MG TWICE PER DAY
     Route: 048
  2. ACE INHIBITOR [Concomitant]
  3. DIURETIC [Concomitant]

REACTIONS (1)
  - HYPERURICAEMIA [None]
